FAERS Safety Report 21360995 (Version 1)
Quarter: 2022Q3

REPORT INFORMATION
  Report Type: Spontaneous
  Country: US (occurrence: US)
  Receive Date: 20220921
  Receipt Date: 20220921
  Transmission Date: 20221027
  Serious: Yes (Other)
  Sender: FDA-Public Use
  Company Number: US-BAYER-2022A131503

PATIENT
  Age: 67 Year
  Sex: Female

DRUGS (5)
  1. GADOBUTROL [Suspect]
     Active Substance: GADOBUTROL
     Indication: Magnetic resonance imaging
     Dosage: 9 ML, ONCE
     Route: 042
     Dates: start: 20220915, end: 20220915
  2. COZAAR [Concomitant]
     Active Substance: LOSARTAN POTASSIUM
  3. XANAX [Concomitant]
     Active Substance: ALPRAZOLAM
  4. NORVASC [Concomitant]
     Active Substance: AMLODIPINE BESYLATE
  5. PRAVASTATIN [Concomitant]
     Active Substance: PRAVASTATIN

REACTIONS (1)
  - Urticaria [Recovered/Resolved]

NARRATIVE: CASE EVENT DATE: 20220915
